FAERS Safety Report 4703401-7 (Version None)
Quarter: 2005Q2

REPORT INFORMATION
  Report Type: 
  Country: None (occurrence: None)
  Receive Date: 20050624
  Receipt Date: 20050307
  Transmission Date: 20051028
  Serious: No
  Sender: FDA-Public Use
  Company Number: 2005BI003724

PATIENT
  Age: 43 Year
  Sex: Female

DRUGS (6)
  1. NATALIZUMAB [Suspect]
     Indication: MULTIPLE SCLEROSIS
     Dosage: 300 MG; QM; IV
     Route: 042
     Dates: start: 20050210, end: 20050210
  2. PROZAC [Concomitant]
  3. PROVIGIL [Concomitant]
  4. BACLOFEN [Concomitant]
  5. INDEROL [Concomitant]
  6. DETROL [Concomitant]

REACTIONS (1)
  - SYNCOPE VASOVAGAL [None]
